FAERS Safety Report 4862814-3 (Version None)
Quarter: 2005Q4

REPORT INFORMATION
  Report Type: 
  Country: None (occurrence: None)
  Receive Date: 20051219
  Receipt Date: 20051212
  Transmission Date: 20060501
  Serious: Yes (Other)
  Sender: FDA-Public Use
  Company Number: 2005161700

PATIENT
  Sex: Female
  Weight: 74.8435 kg

DRUGS (3)
  1. CELEBREX [Suspect]
     Indication: FIBROMYALGIA
     Dosage: ORAL
     Route: 048
  2. BEXTRA [Suspect]
     Indication: FIBROMYALGIA
  3. ANTIDEPRESSANTS (ANTIDEPRESSANTS) [Concomitant]

REACTIONS (3)
  - DRUG INEFFECTIVE [None]
  - KNEE ARTHROPLASTY [None]
  - PAIN [None]
